FAERS Safety Report 5414908-1 (Version None)
Quarter: 2007Q3

REPORT INFORMATION
  Report Type: 
  Country: None (occurrence: None)
  Receive Date: 20070813
  Receipt Date: 20070724
  Transmission Date: 20080115
  Serious: Yes (Other)
  Sender: FDA-Public Use
  Company Number: 2007RR-08961

PATIENT
  Sex: Female

DRUGS (2)
  1. PARACETAMOL CAPSULES 500MG (ACETAMINOPHEN / PARACETAMOL) UNKNOWN [Suspect]
     Indication: PAIN
     Dosage: 1 G, TRANSPLACENTAL
     Route: 064
  2. ARAVA [Suspect]
     Indication: RHEUMATOID ARTHRITIS
     Dosage: 20 MG, TRANSPLACENTAL
     Route: 064
     Dates: start: 20040415, end: 20050701

REACTIONS (5)
  - CARDIAC MURMUR [None]
  - CARDIAC VALVE DISEASE [None]
  - DRUG EXPOSURE DURING PREGNANCY [None]
  - HEART DISEASE CONGENITAL [None]
  - PREMATURE BABY [None]
